FAERS Safety Report 21928891 (Version 1)
Quarter: 2023Q1

REPORT INFORMATION
  Report Type: Spontaneous
  Country: US (occurrence: US)
  Receive Date: 20230131
  Receipt Date: 20230131
  Transmission Date: 20230418
  Serious: Yes (Death)
  Sender: FDA-Public Use
  Company Number: US-JNJFOC-20230153934

PATIENT
  Age: 74 Year
  Sex: Female

DRUGS (2)
  1. TREMFYA [Suspect]
     Active Substance: GUSELKUMAB
     Indication: Product used for unknown indication
     Dosage: INJECT 100MG SUBCUTANEOUSLYAT WEEK 4 AND EVERY 8 WEEKSTHEREAFTER
     Route: 058
     Dates: start: 20220802
  2. TREMFYA [Suspect]
     Active Substance: GUSELKUMAB
     Dosage: INJECT 100MG SUBCUTANEOUSLYAT WEEK 4 AND EVERY 8 WEEKSTHEREAFTER
     Route: 058
     Dates: end: 20220921

REACTIONS (1)
  - Death [Fatal]
